FAERS Safety Report 6773198-8 (Version None)
Quarter: 2010Q2

REPORT INFORMATION
  Report Type: 
  Country: None (occurrence: None)
  Receive Date: 20100616
  Receipt Date: 20090220
  Transmission Date: 20101027
  Serious: Yes (Other)
  Sender: FDA-Public Use
  Company Number: PHHY2009US66351

PATIENT
  Sex: Female

DRUGS (1)
  1. AREDIA [Suspect]
     Indication: METASTASES TO BONE
     Dosage: 90 MG, QMO
     Route: 042
     Dates: start: 19990101, end: 20030101

REACTIONS (23)
  - ATELECTASIS [None]
  - BLADDER DISORDER [None]
  - BONE LESION [None]
  - EXOSTOSIS [None]
  - HAEMANGIOMA OF LIVER [None]
  - HEPATIC LESION [None]
  - LUNG NEOPLASM [None]
  - LYMPHADENOPATHY [None]
  - MESENTERITIS [None]
  - METASTASES TO BONE [None]
  - METASTASES TO LIVER [None]
  - METASTASES TO LUNG [None]
  - METASTASES TO PLEURA [None]
  - OVARIAN CYST [None]
  - PLEURAL DISORDER [None]
  - PLEURAL EFFUSION [None]
  - PLEURAL FIBROSIS [None]
  - PNEUMONIA [None]
  - PULMONARY OEDEMA [None]
  - RENAL CYST [None]
  - SPINAL OSTEOARTHRITIS [None]
  - TOTAL LUNG CAPACITY DECREASED [None]
  - VERTEBRAL FORAMINAL STENOSIS [None]
